FAERS Safety Report 7276520-1 (Version None)
Quarter: 2011Q1

REPORT INFORMATION
  Report Type: 
  Country: None (occurrence: None)
  Receive Date: 20110204
  Receipt Date: 20110127
  Transmission Date: 20110831
  Serious: Yes (Hospitalization)
  Sender: FDA-Public Use
  Company Number: GB-MEDIMMUNE-MEDI-0012276

PATIENT
  Sex: Male
  Weight: 4.62 kg

DRUGS (2)
  1. SYNAGIS [Suspect]
     Route: 030
     Dates: start: 20101222, end: 20110119
  2. SYNAGIS [Suspect]
     Route: 030
     Dates: start: 20101112, end: 20101112

REACTIONS (2)
  - BRONCHIOLITIS [None]
  - RESPIRATORY SYNCYTIAL VIRUS TEST POSITIVE [None]
